FAERS Safety Report 9526581 (Version 1)
Quarter: 2013Q3

REPORT INFORMATION
  Report Type: Spontaneous
  Country: US (occurrence: US)
  Receive Date: 20130916
  Receipt Date: 20130916
  Transmission Date: 20140515
  Serious: No
  Sender: FDA-Public Use
  Company Number: US-PFIZER INC-2013264617

PATIENT
  Age: 45 Year
  Sex: Male

DRUGS (2)
  1. VIAGRA [Suspect]
     Dosage: 100 MG, UNK
  2. VIAGRA [Suspect]
     Dosage: 25 MG SILDENAFIL BY CUTTING 100MG INTO FOUR PIECES

REACTIONS (3)
  - Drug ineffective [Unknown]
  - Nasal congestion [Unknown]
  - Headache [Unknown]
